FAERS Safety Report 25987569 (Version 1)
Quarter: 2025Q4

REPORT INFORMATION
  Report Type: Report from Study
  Country: US (occurrence: US)
  Receive Date: 20251103
  Receipt Date: 20251103
  Transmission Date: 20260117
  Serious: Yes (Other)
  Sender: ALEXION PHARMACEUTICALS
  Company Number: US-AstraZeneca-CH-00980607A

PATIENT
  Sex: Female

DRUGS (1)
  1. OLAPARIB [Suspect]
     Active Substance: OLAPARIB
     Route: 065

REACTIONS (5)
  - Malignant neoplasm progression [Unknown]
  - Illness [Unknown]
  - Hepatic cancer [Unknown]
  - Hypoacusis [Unknown]
  - Lung neoplasm malignant [Unknown]
